FAERS Safety Report 26162461 (Version 1)
Quarter: 2025Q4

REPORT INFORMATION
  Report Type: Report from Study
  Country: EU (occurrence: EU)
  Receive Date: 20251216
  Receipt Date: 20251216
  Transmission Date: 20260118
  Serious: Yes (Other)
  Sender: JOHNSON AND JOHNSON
  Company Number: EU-ABBVIE-6304402

PATIENT
  Age: 42 Year
  Sex: Male

DRUGS (5)
  1. STELARA [Suspect]
     Active Substance: USTEKINUMAB
     Indication: Crohn^s disease
     Route: 058
  2. HUMIRA [Suspect]
     Active Substance: ADALIMUMAB
     Indication: Crohn^s disease
     Route: 058
  3. RINVOQ [Suspect]
     Active Substance: UPADACITINIB
     Indication: Crohn^s disease
     Dosage: FOR FIRST 12 WEEKS
     Route: 048
  4. RINVOQ [Suspect]
     Active Substance: UPADACITINIB
     Dosage: LAST ADMIN DATE: 2025
     Route: 048
     Dates: start: 20250120
  5. RINVOQ [Suspect]
     Active Substance: UPADACITINIB
     Dosage: FIRST ADMIN DATE: 2025
     Route: 048

REACTIONS (8)
  - Herpes ophthalmic [Unknown]
  - Purulence [Not Recovered/Not Resolved]
  - Acne [Recovered/Resolved]
  - Rash [Not Recovered/Not Resolved]
  - Semen discolouration [Unknown]
  - Therapeutic product effect decreased [Recovered/Resolved]
  - Oral herpes [Unknown]
  - Herpes virus infection [Unknown]

NARRATIVE: CASE EVENT DATE: 20250101
